FAERS Safety Report 7546977-7 (Version None)
Quarter: 2011Q2

REPORT INFORMATION
  Report Type: 
  Country: None (occurrence: None)
  Receive Date: 20110614
  Receipt Date: 20110503
  Transmission Date: 20111010
  Serious: Yes (Hospitalization)
  Sender: FDA-Public Use
  Company Number: PHHO2011US07744

PATIENT
  Sex: Female
  Weight: 84 kg

DRUGS (9)
  1. METFORMIN HCL [Suspect]
     Indication: DIABETES MELLITUS
     Dosage: UNK
     Route: 048
     Dates: start: 20110318, end: 20110427
  2. PLACEBO [Suspect]
     Indication: BREAST CANCER METASTATIC
     Dosage: DOUBLE BLIND
     Route: 048
     Dates: start: 20101222, end: 20110427
  3. BLINDED NO TREATMENT RECEIVED [Suspect]
     Dosage: DOUBLE BLIND
     Route: 048
     Dates: start: 20110429
  4. EXEMESTANE [Suspect]
     Dosage: UNK
     Route: 048
     Dates: start: 20110429
  5. AFINITOR [Suspect]
     Indication: BREAST CANCER METASTATIC
     Dosage: DOUBLE BLIND
     Route: 048
     Dates: start: 20101222, end: 20110427
  6. BLINDED NO TREATMENT RECEIVED [Suspect]
     Indication: BREAST CANCER METASTATIC
     Dosage: DOUBLE BLIND
     Route: 048
     Dates: start: 20101222, end: 20110427
  7. AFINITOR [Suspect]
     Dosage: DOUBLE BLIND
     Route: 048
     Dates: start: 20110429
  8. PLACEBO [Suspect]
     Dosage: DOUBLE BLIND
     Route: 048
     Dates: start: 20110429
  9. COMPARATOR EXEMESTANE [Suspect]
     Indication: BREAST CANCER METASTATIC
     Dosage: 25 MG, UNK
     Route: 048
     Dates: end: 20110427

REACTIONS (1)
  - OESOPHAGEAL STENOSIS [None]
